FAERS Safety Report 5121763-6 (Version None)
Quarter: 2006Q4

REPORT INFORMATION
  Report Type: 
  Country: None (occurrence: None)
  Receive Date: 20061003
  Receipt Date: 20060925
  Transmission Date: 20070319
  Serious: Yes (Other)
  Sender: FDA-Public Use
  Company Number: 2006BL004330

PATIENT
  Age: 25 Year
  Sex: Male

DRUGS (4)
  1. DEXAMETHASONE [Suspect]
     Indication: TESTIS CANCER
     Dosage: SEE IMAGE
  2. BLEOMYCIN [Suspect]
     Indication: TESTIS CANCER
     Dosage: 20 INTERNATIONAL UNITS;
  3. CISPLATIN [Suspect]
     Indication: TESTIS CANCER
     Dosage: 40 MILLIGRAMS PER SQUARE METER;
  4. ETOPOSIDE [Suspect]
     Indication: TESTIS CANCER

REACTIONS (8)
  - ARTHRALGIA [None]
  - BONE DISORDER [None]
  - GAIT DISTURBANCE [None]
  - GROIN PAIN [None]
  - JOINT RANGE OF MOTION DECREASED [None]
  - MOBILITY DECREASED [None]
  - OEDEMA [None]
  - OSTEONECROSIS [None]
